FAERS Safety Report 10522779 (Version 1)
Quarter: 2014Q4

REPORT INFORMATION
  Report Type: Spontaneous
  Country: BR (occurrence: BR)
  Receive Date: 20141016
  Receipt Date: 20141016
  Transmission Date: 20150528
  Serious: Yes (Other)
  Sender: FDA-Public Use
  Company Number: BR-MYLANLABS-2014M1007402

PATIENT

DRUGS (6)
  1. SIMVASTATIN. [Concomitant]
     Active Substance: SIMVASTATIN
     Dosage: (1-0-0)
     Route: 065
  2. ESOMEPRAZOLE [Concomitant]
     Active Substance: ESOMEPRAZOLE
     Dosage: (1-0-0)
     Route: 065
  3. AMITRIPTYLINE [Interacting]
     Active Substance: AMITRIPTYLINE
     Indication: OFF LABEL USE
  4. PARACETAMOL [Interacting]
     Active Substance: ACETAMINOPHEN
     Indication: FIBROMYALGIA
     Dosage: (1-1-1); INCREASED BY PATIENT TO UNSPECIFIED DOSAGE
     Route: 065
  5. TRAMADOL [Interacting]
     Active Substance: TRAMADOL
     Indication: FIBROMYALGIA
     Dosage: (1-0-1)
     Route: 065
  6. AMITRIPTYLINE [Suspect]
     Active Substance: AMITRIPTYLINE
     Indication: FIBROMYALGIA
     Dosage: (0-0-1)
     Route: 065

REACTIONS (2)
  - Serotonin syndrome [Recovered/Resolved]
  - Drug interaction [Recovered/Resolved]
